FAERS Safety Report 4659473-1 (Version None)
Quarter: 2005Q2

REPORT INFORMATION
  Report Type: 
  Country: None (occurrence: None)
  Receive Date: 20050412
  Receipt Date: 20041220
  Transmission Date: 20051028
  Serious: No
  Sender: FDA-Public Use
  Company Number: 2004S1000280

PATIENT
  Age: 53 Year
  Sex: Female

DRUGS (49)
  1. CUBICIN [Suspect]
     Indication: SEPSIS
     Dosage: 200 MG; Q24H; IV
     Route: 042
     Dates: start: 20040622, end: 20040721
  2. ACETAMINOPHEN [Concomitant]
  3. ALBUMIN (HUMAN) [Concomitant]
  4. ALPROSTADIL [Concomitant]
  5. TOTAL PERENTERAL NUTRITION [Concomitant]
  6. AMLODIPINE [Concomitant]
  7. AMPHOTERICIN B [Concomitant]
  8. AZTREONAM [Concomitant]
  9. BUMETANIDE [Concomitant]
  10. CASPOFUNGIN [Concomitant]
  11. CEFEPIME [Concomitant]
  12. CHLOROTHIAZIDE [Concomitant]
  13. CLONIDINE [Concomitant]
  14. DARBEPOETIN [Concomitant]
  15. DIPHENHYDRAMINE HCL [Concomitant]
  16. FAMOTIDINE [Concomitant]
  17. FAT EMULSIONS [Concomitant]
  18. FUROSEMIDE [Concomitant]
  19. GANCICLOVIR [Concomitant]
  20. GRANULOCYTE CELL STIMULATING FACTOR [Concomitant]
  21. HALOPERIDOL [Concomitant]
  22. HYDROCORTISONE [Concomitant]
  23. HYDORMORPHONE [Concomitant]
  24. IMMUNE GLOBULIN (HUMAN) [Concomitant]
  25. INSULIN [Concomitant]
  26. POTASSIUM CHLORIDE [Concomitant]
  27. LANSOPRAZOLE [Concomitant]
  28. LEVOFLOXACIN [Concomitant]
  29. LIDOCAINE 1% W/ EPINEPHRINE 1:200,000 [Concomitant]
  30. LINEZOLID [Concomitant]
  31. MAGNESIUM SULFATE [Concomitant]
  32. METHYLPREDNISOLONE [Concomitant]
  33. METOPROLOL [Concomitant]
  34. METRONIDAZOLE [Concomitant]
  35. NOREPINEPHRINE [Concomitant]
  36. NYSTATIN [Concomitant]
  37. ONDANSETRON [Concomitant]
  38. PENTAMIDINE [Concomitant]
  39. PIPERACILLIN/TAZOBACTAM [Concomitant]
  40. PROPOFOL [Concomitant]
  41. SARGRAMOSTIM [Concomitant]
  42. SODIUM BICARBONATE [Concomitant]
  43. SOIDUM PHOSPHATE [Concomitant]
  44. SULFAMETHOXAZOLE + TRIMETHOPRIM [Concomitant]
  45. TACROLIMUS [Concomitant]
  46. URSODIOL [Concomitant]
  47. VANCOMYCIN [Concomitant]
  48. VITAMIN K [Concomitant]
  49. VORICONAZOLE [Concomitant]

REACTIONS (1)
  - INTERNATIONAL NORMALISED RATIO INCREASED [None]
